FAERS Safety Report 4761686-5 (Version None)
Quarter: 2005Q3

REPORT INFORMATION
  Report Type: 
  Country: None (occurrence: None)
  Receive Date: 20050906
  Receipt Date: 20050826
  Transmission Date: 20060218
  Serious: Yes (Disabling)
  Sender: FDA-Public Use
  Company Number: PHBS2005CH12455

PATIENT
  Age: 60 Year
  Sex: Male

DRUGS (3)
  1. LEPONEX [Suspect]
     Indication: PSYCHOTIC DISORDER
     Dosage: 300 MG/D
     Dates: start: 19951119
  2. DEPAKENE [Concomitant]
     Indication: BIPOLAR DISORDER
     Dosage: 2000 MG/D
     Route: 065
     Dates: start: 20050201
  3. IMOVANE [Concomitant]
     Indication: SLEEP DISORDER
     Dosage: 7.5 MG/D
     Route: 065
     Dates: start: 20050711

REACTIONS (8)
  - AGITATION [None]
  - ASPIRATION BRONCHIAL [None]
  - BRONCHOPNEUMONIA [None]
  - CEREBROVASCULAR ACCIDENT [None]
  - DYSPHAGIA [None]
  - GASTROSTOMY [None]
  - INFECTION [None]
  - LUNG DISORDER [None]
